FAERS Safety Report 10476871 (Version 8)
Quarter: 2016Q1

REPORT INFORMATION
  Report Type: Report from Study
  Country: US (occurrence: US)
  Receive Date: 20140926
  Receipt Date: 20160126
  Transmission Date: 20160525
  Serious: Yes (Hospitalization, Other)
  Sender: FDA-Public Use
  Company Number: US-AMGEN-USASP2014072821

PATIENT
  Age: 76 Year
  Sex: Female

DRUGS (3)
  1. ENBREL [Suspect]
     Active Substance: ETANERCEPT
     Indication: RHEUMATOID ARTHRITIS
     Dosage: 50 MG, QMO
     Route: 065
  2. METHOTREXATE [Concomitant]
     Active Substance: METHOTREXATE
     Dosage: UNK
  3. ENBREL [Suspect]
     Active Substance: ETANERCEPT
     Dosage: 25 MG, Q2WK
     Route: 065
     Dates: start: 20140624

REACTIONS (31)
  - Eye pain [Unknown]
  - Pain [Unknown]
  - Erythema [Recovered/Resolved]
  - Dry mouth [Not Recovered/Not Resolved]
  - Joint warmth [Recovered/Resolved]
  - Rheumatoid arthritis [Not Recovered/Not Resolved]
  - Somnolence [Not Recovered/Not Resolved]
  - Rash [Recovered/Resolved]
  - Nausea [Recovered/Resolved]
  - Blood pressure increased [Unknown]
  - Eye swelling [Unknown]
  - Swelling [Unknown]
  - Finger deformity [Not Recovered/Not Resolved]
  - Rash pruritic [Not Recovered/Not Resolved]
  - Asthenia [Not Recovered/Not Resolved]
  - Glossodynia [Unknown]
  - Gait disturbance [Recovered/Resolved]
  - Dizziness [Recovered/Resolved]
  - Rash erythematous [Not Recovered/Not Resolved]
  - Muscular weakness [Not Recovered/Not Resolved]
  - Facial pain [Unknown]
  - Gingival swelling [Unknown]
  - Fall [Recovered/Resolved]
  - Pruritus [Recovered/Resolved]
  - Swelling face [Unknown]
  - Pyrexia [Unknown]
  - Hip surgery [Not Recovered/Not Resolved]
  - Adverse drug reaction [Unknown]
  - Swollen tongue [Unknown]
  - Ear pain [Unknown]
  - Gingival pain [Unknown]

NARRATIVE: CASE EVENT DATE: 20140911
